FAERS Safety Report 6489173-7 (Version None)
Quarter: 2009Q4

REPORT INFORMATION
  Report Type: 
  Country: None (occurrence: None)
  Receive Date: 20091123
  Receipt Date: 20090820
  Transmission Date: 20100525
  Serious: No
  Sender: FDA-Public Use
  Company Number: 8050726

PATIENT
  Age: 37 Year
  Sex: Female

DRUGS (9)
  1. CIMZIA [Suspect]
     Indication: CROHN'S DISEASE
     Dosage: 400 MG 1/2W SC
     Route: 058
     Dates: start: 20090629, end: 20090811
  2. FENTANYL CITRATE [Concomitant]
  3. NORCO [Concomitant]
  4. WELLBUTRIN [Concomitant]
  5. CYMBALTA [Concomitant]
  6. REGLAN [Concomitant]
  7. ZOFRAN [Concomitant]
  8. PROTONIX [Concomitant]
  9. FE INFUSIONS [Concomitant]

REACTIONS (12)
  - ANXIETY [None]
  - CHROMATURIA [None]
  - EMOTIONAL DISORDER [None]
  - FATIGUE [None]
  - MASS [None]
  - MOOD ALTERED [None]
  - NAUSEA [None]
  - NIGHT SWEATS [None]
  - PAIN [None]
  - POLLAKIURIA [None]
  - RASH [None]
  - URINE ODOUR ABNORMAL [None]
